FAERS Safety Report 5930701-5 (Version None)
Quarter: 2008Q4

REPORT INFORMATION
  Report Type: 
  Country: None (occurrence: None)
  Receive Date: 20081001
  Receipt Date: 20080915
  Transmission Date: 20090506
  Serious: Yes (Other)
  Sender: FDA-Public Use
  Company Number: 52320

PATIENT
  Age: 48 Year
  Sex: Female

DRUGS (1)
  1. ONDANSETRON [Suspect]
     Dosage: 1 INJECTION
     Dates: start: 20080913

REACTIONS (2)
  - ANAPHYLACTIC REACTION [None]
  - HYPERSENSITIVITY [None]
